FAERS Safety Report 9934805 (Version 2)
Quarter: 2014Q1

REPORT INFORMATION
  Report Type: Spontaneous
  Country: JP (occurrence: JP)
  Receive Date: 20140228
  Receipt Date: 20140314
  Transmission Date: 20141002
  Serious: Yes (Other)
  Sender: FDA-Public Use
  Company Number: JP-GLAXOSMITHKLINE-B0966849A

PATIENT
  Age: 64 Year
  Sex: Female

DRUGS (3)
  1. RELENZA [Suspect]
     Indication: INFLUENZA
     Dosage: 10MG TWICE PER DAY
     Route: 055
     Dates: start: 20140129, end: 20140129
  2. ACETAMINOPHEN [Concomitant]
     Route: 048
     Dates: start: 20140129
  3. HUSCODE [Concomitant]
     Dosage: 3IUAX THREE TIMES PER DAY
     Route: 048
     Dates: start: 20140129

REACTIONS (6)
  - Altered state of consciousness [Recovered/Resolved]
  - Face oedema [Recovered/Resolved]
  - Dyspnoea [Recovered/Resolved]
  - Depressed level of consciousness [Recovered/Resolved]
  - Loss of consciousness [Recovered/Resolved]
  - Fall [Recovered/Resolved]
